FAERS Safety Report 8236009-X (Version None)
Quarter: 2012Q1

REPORT INFORMATION
  Report Type: 
  Country: None (occurrence: None)
  Receive Date: 20120326
  Receipt Date: 20120315
  Transmission Date: 20120608
  Serious: Yes (Other)
  Sender: FDA-Public Use
  Company Number: AU-ASTRAZENECA-2011SE38373

PATIENT
  Age: 66 Year
  Sex: Female

DRUGS (1)
  1. ARIMIDEX [Suspect]
     Route: 048
     Dates: start: 20100601

REACTIONS (3)
  - ARTHRITIS [None]
  - MUSCULAR WEAKNESS [None]
  - PROGRESSIVE SUPRANUCLEAR PALSY [None]
